FAERS Safety Report 18964743 (Version 2)
Quarter: 2024Q1

REPORT INFORMATION
  Report Type: Spontaneous
  Country: US (occurrence: US)
  Receive Date: 20210303
  Receipt Date: 20240226
  Transmission Date: 20240410
  Serious: No
  Sender: FDA-Public Use
  Company Number: US-AMNEAL PHARMACEUTICALS-2020-AMRX-00810

PATIENT
  Age: 57 Year
  Sex: Female

DRUGS (3)
  1. RYTARY [Suspect]
     Active Substance: CARBIDOPA\LEVODOPA
     Indication: Product used for unknown indication
     Dosage: 1 CAPSULES, QID
     Route: 065
  2. RYTARY [Suspect]
     Active Substance: CARBIDOPA\LEVODOPA
     Dosage: 02 CAPSULES, 3 /DAY
     Route: 048
  3. RYTARY [Suspect]
     Active Substance: CARBIDOPA\LEVODOPA
     Dosage: 01 CAPSULES, 3 /DAY
     Route: 048
     Dates: start: 20231020

REACTIONS (2)
  - Adverse drug reaction [Unknown]
  - Hyperaesthesia [Unknown]

NARRATIVE: CASE EVENT DATE: 20231020
